FAERS Safety Report 8484577-5 (Version None)
Quarter: 2012Q3

REPORT INFORMATION
  Report Type: 
  Country: None (occurrence: None)
  Receive Date: 20120703
  Receipt Date: 20120320
  Transmission Date: 20120928
  Serious: No
  Sender: FDA-Public Use
  Company Number: US-TEVA-328732USA

PATIENT
  Sex: Female
  Weight: 68.1 kg

DRUGS (1)
  1. NUVIGIL [Suspect]
     Indication: HYPERSOMNIA
     Dosage: 450 MILLIGRAM;
     Route: 048

REACTIONS (2)
  - SOMNOLENCE [None]
  - DRUG PRESCRIBING ERROR [None]
